FAERS Safety Report 8162417-1 (Version None)
Quarter: 2012Q1

REPORT INFORMATION
  Report Type: 
  Country: None (occurrence: None)
  Receive Date: 20120224
  Receipt Date: 20120223
  Transmission Date: 20120608
  Serious: Yes (Hospitalization)
  Sender: FDA-Public Use
  Company Number: IT-AMGEN-ITASP2012002753

PATIENT
  Age: 73 Year
  Sex: Female

DRUGS (1)
  1. VECTIBIX [Suspect]
     Indication: COLON CANCER
     Dosage: 6 MG/KG, Q2WK
     Route: 042
     Dates: start: 20111017, end: 20111227

REACTIONS (3)
  - RASH GENERALISED [None]
  - ECZEMA [None]
  - DRY SKIN [None]
